FAERS Safety Report 25740875 (Version 1)
Quarter: 2025Q3

REPORT INFORMATION
  Report Type: Spontaneous
  Country: US (occurrence: US)
  Receive Date: 20250829
  Receipt Date: 20250829
  Transmission Date: 20251021
  Serious: No
  Sender: SANOFI AVENTIS
  Company Number: US-SA-2025SA258432

PATIENT
  Age: 21 Year
  Sex: Male

DRUGS (1)
  1. DUPIXENT [Suspect]
     Active Substance: DUPILUMAB
     Indication: Dermatitis atopic
     Route: 058

REACTIONS (6)
  - Migraine with aura [Unknown]
  - Fatigue [Unknown]
  - Joint stiffness [Unknown]
  - Pyrexia [Unknown]
  - Diarrhoea [Unknown]
  - Arthralgia [Unknown]
